FAERS Safety Report 8995047 (Version 1)
Quarter: 2012Q4

REPORT INFORMATION
  Report Type: Spontaneous
  Country: US (occurrence: None)
  Receive Date: 20121228
  Receipt Date: 20121228
  Transmission Date: 20130627
  Serious: Yes (Hospitalization)
  Sender: FDA-Public Use
  Company Number: None

PATIENT
  Sex: Female
  Weight: 61.1 kg

DRUGS (20)
  1. CYCLOPHOSPHAMIDE [Suspect]
     Dates: end: 20121127
  2. DOCETAXEL (TAXOTERE) [Suspect]
     Dates: end: 20121127
  3. ADVAIR [Concomitant]
  4. AMILORIDE [Concomitant]
  5. AMOXICILLIN [Concomitant]
  6. ASPIRIN [Concomitant]
  7. BENZYDAMINE (TANTUM) [Concomitant]
  8. CLAVULANIC ACID [Concomitant]
  9. DECADRON [Concomitant]
  10. RABEPRAZOLE SODIUM (TABLET) [Concomitant]
  11. TYLENOL ES [Concomitant]
  12. VITAMIN D [Concomitant]
  13. DIPHENHYDRAMINE [Concomitant]
  14. HYDROCHLOROTHIAZIDE [Concomitant]
  15. METFORMIN [Concomitant]
  16. ONDANSETRON [Concomitant]
  17. PROCHLORPERZINE [Concomitant]
  18. RANITIDINE [Concomitant]
  19. VENLAXAFINE [Concomitant]
  20. ZOPICLONE [Concomitant]

REACTIONS (11)
  - Sinusitis [None]
  - Abdominal tenderness [None]
  - White blood cell count increased [None]
  - Refusal of treatment by patient [None]
  - Dehydration [None]
  - Hypercalcaemia [None]
  - Cough [None]
  - Dyspnoea [None]
  - Hypoxia [None]
  - Blood parathyroid hormone increased [None]
  - Lipase increased [None]
